FAERS Safety Report 10277418 (Version 2)
Quarter: 2014Q3

REPORT INFORMATION
  Report Type: Spontaneous
  Country: US (occurrence: US)
  Receive Date: 20140703
  Receipt Date: 20140929
  Transmission Date: 20150326
  Serious: Yes (Death)
  Sender: FDA-Public Use
  Company Number: 2014SP002100

PATIENT
  Age: 35 Year
  Sex: Female

DRUGS (3)
  1. EFFEXOR XR [Concomitant]
     Active Substance: VENLAFAXINE HYDROCHLORIDE
     Dates: start: 20130701
  2. LATUDA [Suspect]
     Active Substance: LURASIDONE HYDROCHLORIDE
     Route: 048
     Dates: start: 20130701
  3. KLONOPIN [Concomitant]
     Active Substance: CLONAZEPAM
     Dates: start: 20100728

REACTIONS (1)
  - Death [Fatal]

NARRATIVE: CASE EVENT DATE: 201312
